FAERS Safety Report 21043436 (Version 1)
Quarter: 2022Q3

REPORT INFORMATION
  Report Type: Spontaneous
  Country: US (occurrence: None)
  Receive Date: 20220704
  Receipt Date: 20220704
  Transmission Date: 20221026
  Serious: Yes (Hospitalization, Other)
  Sender: FDA-Public Use
  Company Number: None

PATIENT
  Age: 52 Year
  Sex: Male
  Weight: 94.5 kg

DRUGS (6)
  1. UBRELVY [Suspect]
     Active Substance: UBROGEPANT
     Indication: Migraine with aura
     Dosage: FREQUENCY : AS NEEDED;?
     Route: 048
     Dates: start: 20220702, end: 20220703
  2. KLONOPIN [Concomitant]
     Active Substance: CLONAZEPAM
  3. Anafrinal [Concomitant]
  4. PEPCID [Concomitant]
     Active Substance: FAMOTIDINE
  5. DESCOVY [Concomitant]
     Active Substance: EMTRICITABINE\TENOFOVIR ALAFENAMIDE FUMARATE
  6. Pro air Inhaler [Concomitant]

REACTIONS (3)
  - Seizure [None]
  - Fall [None]
  - Thoracic vertebral fracture [None]

NARRATIVE: CASE EVENT DATE: 20220702
